FAERS Safety Report 4318357-9 (Version None)
Quarter: 2004Q1

REPORT INFORMATION
  Report Type: 
  Country: None (occurrence: None)
  Receive Date: 20040315
  Receipt Date: 20031125
  Transmission Date: 20041129
  Serious: No
  Sender: FDA-Public Use
  Company Number: 2003188127US

PATIENT
  Age: 48 Year
  Sex: Male

DRUGS (2)
  1. BEXTRA [Suspect]
     Indication: SKELETAL INJURY
     Dates: start: 20031120, end: 20031120
  2. EFFEXOR [Concomitant]

REACTIONS (1)
  - AMNESIA [None]
